FAERS Safety Report 15341497 (Version 3)
Quarter: 2018Q4

REPORT INFORMATION
  Report Type: Report from Study
  Country: None (occurrence: BR)
  Receive Date: 20180901
  Receipt Date: 20181012
  Transmission Date: 20190204
  Serious: Yes (Other)
  Sender: FDA-Public Use
  Company Number: BR-ABBVIE-17P-020-1925701-00

PATIENT
  Age: 47 Year
  Sex: Male
  Weight: 52 kg

DRUGS (14)
  1. SEROTONIN [Suspect]
     Active Substance: SEROTONIN
     Indication: EPILEPSY
     Dosage: 1 DF IN THE MORNING
     Route: 048
     Dates: start: 2008
  2. PHENYTOIN. [Concomitant]
     Active Substance: PHENYTOIN
     Indication: SEDATIVE THERAPY
  3. DEPAKOTE [Suspect]
     Active Substance: DIVALPROEX SODIUM
     Indication: PRODUCT USED FOR UNKNOWN INDICATION
     Route: 065
     Dates: start: 2008
  4. CLONAZEPAM. [Suspect]
     Active Substance: CLONAZEPAM
     Indication: EPILEPSY
     Route: 048
     Dates: start: 2006
  5. DEPAKOTE ER [Suspect]
     Active Substance: DIVALPROEX SODIUM
     Indication: PRODUCT USED FOR UNKNOWN INDICATION
     Dosage: DAILY DOSE: 1 DF AT NIGHT
     Route: 048
     Dates: start: 2006
  6. PHENYTOIN. [Concomitant]
     Active Substance: PHENYTOIN
     Indication: EPILEPSY
     Route: 048
     Dates: start: 2006
  7. DEPAKOTE ER [Suspect]
     Active Substance: DIVALPROEX SODIUM
     Indication: EPILEPSY
     Route: 065
  8. DEPAKENE [Interacting]
     Active Substance: VALPROIC ACID
     Indication: EPILEPSY
     Route: 048
     Dates: start: 1988, end: 2006
  9. DEPAKOTE [Suspect]
     Active Substance: DIVALPROEX SODIUM
     Dosage: DAILY DOSE: IN THE MORNING
     Route: 065
     Dates: start: 2006, end: 2016
  10. RIVOTRIL [Interacting]
     Active Substance: CLONAZEPAM
     Indication: SLEEP DISORDER THERAPY
     Dosage: 1 TBL. AT NIGHT
     Route: 048
     Dates: start: 2008
  11. GARDENAL [Suspect]
     Active Substance: PHENOBARBITAL
     Indication: EPILEPSY
     Dosage: MORNING / NIGHT
     Route: 048
     Dates: start: 2008
  12. DIVALCON ER [Suspect]
     Active Substance: DIVALPROEX SODIUM
     Indication: EPILEPSY
     Dosage: DAILY DOSE: AT 11AM AND 11PM
     Route: 048
     Dates: start: 2017
  13. DEPAKENE [Interacting]
     Active Substance: VALPROIC ACID
     Route: 065
     Dates: start: 2016
  14. PHENOBARBITAL. [Suspect]
     Active Substance: PHENOBARBITAL
     Indication: EPILEPSY
     Dosage: DAILY DOSE: ADMINISTRATION IN THE MORNING (11 AM) AND AT NIGHT
     Route: 065
     Dates: start: 1970

REACTIONS (20)
  - Head injury [Unknown]
  - Insomnia [Not Recovered/Not Resolved]
  - Respiratory rate increased [Not Recovered/Not Resolved]
  - Bone disorder [Unknown]
  - Back disorder [Unknown]
  - Nervousness [Unknown]
  - Heart rate increased [Not Recovered/Not Resolved]
  - Product use issue [Unknown]
  - Feeling hot [Not Recovered/Not Resolved]
  - Bradycardia [Unknown]
  - Drug effect decreased [Not Recovered/Not Resolved]
  - Vomiting [Unknown]
  - Migraine [Not Recovered/Not Resolved]
  - Anticonvulsant drug level decreased [Unknown]
  - Drug ineffective [Unknown]
  - Haemorrhage [Unknown]
  - Malaise [Not Recovered/Not Resolved]
  - Head discomfort [Not Recovered/Not Resolved]
  - Tremor [Not Recovered/Not Resolved]
  - Drug effect delayed [Unknown]

NARRATIVE: CASE EVENT DATE: 1995
